FAERS Safety Report 13358861 (Version 1)
Quarter: 2017Q1

REPORT INFORMATION
  Report Type: Spontaneous
  Country: US (occurrence: US)
  Receive Date: 20170322
  Receipt Date: 20170322
  Transmission Date: 20170429
  Serious: No
  Sender: FDA-Public Use
  Company Number: US-GLAXOSMITHKLINE-US2017039467

PATIENT
  Sex: Male

DRUGS (2)
  1. POTIGA [Suspect]
     Active Substance: EZOGABINE
     Indication: AMYOTROPHIC LATERAL SCLEROSIS
     Dosage: 200 MG, TID
     Route: 048
  2. POTIGA [Suspect]
     Active Substance: EZOGABINE
     Indication: SEIZURE
     Dosage: UNK
     Route: 048
     Dates: start: 201503

REACTIONS (4)
  - Confusional state [Unknown]
  - Drug ineffective [Unknown]
  - Therapeutic response unexpected [Unknown]
  - Product use issue [Unknown]
